FAERS Safety Report 9825780 (Version 1)
Quarter: 2013Q4

REPORT INFORMATION
  Report Type: Spontaneous
  Country: US (occurrence: None)
  Receive Date: 20131223
  Receipt Date: 20131223
  Transmission Date: 20140711
  Serious: Yes (Other)
  Sender: FDA-Public Use
  Company Number: 218049LEO

PATIENT
  Age: 63 Year
  Sex: Female

DRUGS (1)
  1. PICATO [Suspect]
     Indication: ACTINIC KERATOSIS
     Dosage: STARTED 1 WEEK AGO, STOPPED AFTER APPLYING FOR 3 DAYS

REACTIONS (3)
  - Pyrexia [None]
  - Fatigue [None]
  - Application site erythema [None]
